FAERS Safety Report 13681356 (Version 1)
Quarter: 2017Q2

REPORT INFORMATION
  Report Type: Spontaneous
  Country: US (occurrence: US)
  Receive Date: 20170621
  Receipt Date: 20170621
  Transmission Date: 20170830
  Serious: Yes (Life-Threatening, Disabling)
  Sender: FDA-Public Use
  Company Number: None

PATIENT
  Age: 51 Year
  Sex: Female
  Weight: 58.5 kg

DRUGS (5)
  1. VITAMIN D [Concomitant]
     Active Substance: CHOLECALCIFEROL
  2. OMEGA 3 [Concomitant]
     Active Substance: OMEGA-3 FATTY ACIDS
  3. KLONOPIN [Suspect]
     Active Substance: CLONAZEPAM
     Indication: ANXIETY
     Dosage: ?          QUANTITY:1 TABLET(S);?
     Route: 048
     Dates: start: 20030701, end: 20060701
  4. MULTI-VITAMIN [Concomitant]
     Active Substance: .ALPHA.-TOCOPHEROL ACETATE, DL-\ASCORBIC ACID\CYANOCOBALAMIN\FLUORIDE ION\FOLIC ACID\NIACIN\PYRIDOXINE\RIBOFLAVIN\THIAMINE\VITAMIN A\VITAMIN D
  5. PROBIOTICS [Concomitant]
     Active Substance: PROBIOTICS NOS

REACTIONS (12)
  - Marital problem [None]
  - Withdrawal syndrome [None]
  - Memory impairment [None]
  - Akathisia [None]
  - Anxiety [None]
  - Dizziness [None]
  - Educational problem [None]
  - Cardiac disorder [None]
  - Speech disorder [None]
  - Cognitive disorder [None]
  - Visual impairment [None]
  - Emotional disorder [None]

NARRATIVE: CASE EVENT DATE: 20030701
